FAERS Safety Report 14965266 (Version 4)
Quarter: 2018Q4

REPORT INFORMATION
  Report Type: Report from Study
  Country: US (occurrence: US)
  Receive Date: 20180601
  Receipt Date: 20181008
  Transmission Date: 20190204
  Serious: Yes (Hospitalization)
  Sender: FDA-Public Use
  Company Number: US-ACTELION-A-NJ2017-151791

PATIENT
  Age: 70 Year
  Sex: Male
  Weight: 86.17 kg

DRUGS (4)
  1. ELIQUIS [Concomitant]
     Active Substance: APIXABAN
  2. OPSUMIT [Suspect]
     Active Substance: MACITENTAN
     Indication: PULMONARY ARTERIAL HYPERTENSION
     Dosage: 10 MG, QD
     Route: 048
  3. SILDENAFIL CITRATE. [Concomitant]
     Active Substance: SILDENAFIL CITRATE
  4. OPSUMIT [Suspect]
     Active Substance: MACITENTAN
     Dosage: 10 MG, QD
     Route: 048

REACTIONS (17)
  - Rotator cuff syndrome [Unknown]
  - Rash generalised [Unknown]
  - Musculoskeletal pain [Unknown]
  - Joint injury [Unknown]
  - Sleep apnoea syndrome [Unknown]
  - Impaired healing [Unknown]
  - Dyspnoea [Unknown]
  - Burning sensation [Unknown]
  - Bedridden [Unknown]
  - Dizziness exertional [Unknown]
  - Insomnia [Unknown]
  - Knee arthroplasty [Unknown]
  - Arthritis infective [Unknown]
  - Back pain [Unknown]
  - Tibia fracture [Unknown]
  - Staphylococcal infection [Unknown]
  - Rash pruritic [Unknown]

NARRATIVE: CASE EVENT DATE: 2018
